FAERS Safety Report 5162169-3 (Version None)
Quarter: 2006Q4

REPORT INFORMATION
  Report Type: 
  Country: None (occurrence: None)
  Receive Date: 20061121
  Receipt Date: 20061113
  Transmission Date: 20070319
  Serious: Yes (Hospitalization)
  Sender: FDA-Public Use
  Company Number: 2006140585

PATIENT
  Age: 35 Year
  Sex: Female

DRUGS (1)
  1. MYLANTA PLUS [Suspect]
     Indication: DYSPEPSIA
     Dosage: 10 ML TID ORAL
     Route: 048
     Dates: start: 20060210, end: 20060201

REACTIONS (2)
  - ABORTION SPONTANEOUS [None]
  - DRUG EXPOSURE DURING PREGNANCY [None]
